FAERS Safety Report 17893933 (Version 1)
Quarter: 2020Q2

REPORT INFORMATION
  Report Type: Spontaneous
  Country: GB (occurrence: GB)
  Receive Date: 20200615
  Receipt Date: 20200615
  Transmission Date: 20200714
  Serious: Yes (Other)
  Sender: FDA-Public Use
  Company Number: GB-TEVA-2020-GB-1247360

PATIENT
  Age: 71 Year
  Sex: Male

DRUGS (4)
  1. PAMSVAX XL [Suspect]
     Active Substance: TAMSULOSIN HYDROCHLORIDE
     Indication: NOCTURIA
     Dosage: 400 MG
     Route: 048
     Dates: start: 20200504, end: 20200518
  2. AMLODIPINE [Concomitant]
     Active Substance: AMLODIPINE BESYLATE
  3. FOSTAIR [Concomitant]
     Active Substance: BECLOMETHASONE\FORMOTEROL
  4. SPIRIVA [Concomitant]
     Active Substance: TIOTROPIUM BROMIDE MONOHYDRATE

REACTIONS (4)
  - Dizziness [Recovering/Resolving]
  - Groin pain [Recovering/Resolving]
  - Hypotension [Recovering/Resolving]
  - Renal pain [Recovering/Resolving]

NARRATIVE: CASE EVENT DATE: 20200506
